FAERS Safety Report 5670138-X (Version None)
Quarter: 2008Q1

REPORT INFORMATION
  Report Type: 
  Country: None (occurrence: None)
  Receive Date: 20080312
  Receipt Date: 20080228
  Transmission Date: 20080703
  Serious: Yes (Death)
  Sender: FDA-Public Use
  Company Number: 18473

PATIENT
  Sex: Female

DRUGS (1)
  1. METHOTREXATE [Suspect]

REACTIONS (2)
  - ABDOMINAL PAIN [None]
  - DERMATITIS BULLOUS [None]
